FAERS Safety Report 11324734 (Version 2)
Quarter: 2015Q3

REPORT INFORMATION
  Report Type: Spontaneous
  Country: US (occurrence: US)
  Receive Date: 20150730
  Receipt Date: 20150909
  Transmission Date: 20151125
  Serious: Yes (Hospitalization)
  Sender: FDA-Public Use
  Company Number: US-ASTRAZENECA-2015SE30688

PATIENT
  Age: 27765 Day
  Sex: Female

DRUGS (19)
  1. GLIMEPIRIDE. [Concomitant]
     Active Substance: GLIMEPIRIDE
     Route: 048
  2. ZOLOFT [Suspect]
     Active Substance: SERTRALINE HYDROCHLORIDE
     Route: 065
  3. PROAIRHFA [Concomitant]
     Indication: RHINITIS PERENNIAL
     Route: 055
  4. SEROQUEL [Suspect]
     Active Substance: QUETIAPINE FUMARATE
     Route: 065
  5. DAPAGLIFLOZIN CODE NOT BROKEN [Suspect]
     Active Substance: DAPAGLIFLOZIN
     Indication: TYPE 2 DIABETES MELLITUS
     Route: 048
     Dates: start: 20140611
  6. HYDROCHLOROTHIAZIDE. [Concomitant]
     Active Substance: HYDROCHLOROTHIAZIDE
     Indication: HYPERTENSION
     Route: 048
  7. ASPIRIN. [Concomitant]
     Active Substance: ASPIRIN
     Indication: CORONARY ARTERY DISEASE
     Route: 048
  8. BACLOFEN. [Suspect]
     Active Substance: BACLOFEN
     Route: 065
  9. KEPPRA [Suspect]
     Active Substance: LEVETIRACETAM
     Route: 065
  10. TOVIAZ [Concomitant]
     Active Substance: FESOTERODINE FUMARATE
     Indication: HYPERTONIC BLADDER
     Route: 048
  11. METFORMIN [Concomitant]
     Active Substance: METFORMIN HYDROCHLORIDE
     Route: 048
  12. LOSARTAN POSTASSIUM [Concomitant]
     Indication: HYPERTENSION
     Route: 048
  13. VITAMIN D3 [Concomitant]
     Active Substance: CHOLECALCIFEROL
     Indication: VITAMIN D
     Route: 048
  14. PRECOSE [Concomitant]
     Active Substance: ACARBOSE
     Route: 048
  15. DIAZEPAM. [Concomitant]
     Active Substance: DIAZEPAM
     Indication: ANXIETY
     Route: 048
  16. METHENAMINE HIPPURATE. [Concomitant]
     Active Substance: METHENAMINE HIPPURATE
     Indication: PROPHYLAXIS
     Route: 048
  17. LATANOPROST. [Concomitant]
     Active Substance: LATANOPROST
     Indication: INTRAOCULAR PRESSURE TEST
     Route: 047
  18. AZOPT [Concomitant]
     Active Substance: BRINZOLAMIDE
     Indication: INTRAOCULAR PRESSURE TEST
  19. ASTEPRO [Concomitant]
     Active Substance: AZELASTINE HYDROCHLORIDE
     Indication: RHINITIS PERENNIAL
     Route: 045

REACTIONS (1)
  - Accidental poisoning [Recovered/Resolved]

NARRATIVE: CASE EVENT DATE: 20140813
